FAERS Safety Report 10057594 (Version 3)
Quarter: 2014Q2

REPORT INFORMATION
  Report Type: Spontaneous
  Country: JP (occurrence: JP)
  Receive Date: 20140404
  Receipt Date: 20140416
  Transmission Date: 20141212
  Serious: Yes (Other)
  Sender: FDA-Public Use
  Company Number: JP-PFIZER INC-2014073655

PATIENT
  Age: 64 Year
  Sex: Female
  Weight: 46 kg

DRUGS (10)
  1. LYRICA [Suspect]
     Indication: PAIN
     Dosage: AT 75 MG ONCE DAILY IN THE EVENING
     Route: 048
     Dates: start: 20140311, end: 20140311
  2. ARGAMATE [Concomitant]
     Indication: HYPERKALAEMIA
     Dosage: 25 G, 1X/DAY
     Route: 048
     Dates: start: 20050223
  3. HERBESSER [Concomitant]
     Indication: MYOCARDIAL ISCHAEMIA
     Dosage: 100 MG, 1X/DAY
     Route: 048
     Dates: start: 20061101
  4. REGPARA [Concomitant]
     Indication: HYPERPARATHYROIDISM SECONDARY
     Dosage: 25 MG, 1X/DAY
     Route: 048
     Dates: start: 20110214
  5. NITOROL [Concomitant]
     Indication: MYOCARDIAL ISCHAEMIA
     Dosage: 20 MG, 2X/DAY
     Route: 048
     Dates: start: 20070411
  6. NEUER [Concomitant]
     Dosage: UNK
  7. ZYLORIC [Concomitant]
     Indication: HYPERURICAEMIA
     Dosage: 50 MG, 1X/DAY
     Route: 048
     Dates: start: 20020605
  8. FOSRENOL [Concomitant]
     Indication: HYPERPHOSPHATAEMIA
     Dosage: 500 MG, 3X/DAY
     Route: 048
     Dates: start: 20121219
  9. ROCALTROL [Concomitant]
     Indication: HYPERPARATHYROIDISM SECONDARY
     Dosage: 0.25 UG, 1X/DAY
     Route: 048
     Dates: start: 20140312
  10. FESIN [Concomitant]
     Indication: IRON DEFICIENCY ANAEMIA
     Dosage: 40 MG ONCE WEEKLY
     Route: 041
     Dates: start: 20140307

REACTIONS (8)
  - Muscular weakness [Recovered/Resolved]
  - Asthenia [Recovered/Resolved]
  - Malaise [Recovered/Resolved]
  - Gait disturbance [Recovered/Resolved]
  - Nausea [Recovered/Resolved]
  - Feeling abnormal [Unknown]
  - Eyelid oedema [Recovered/Resolved]
  - Dizziness [Recovered/Resolved]
